FAERS Safety Report 13113059 (Version 1)
Quarter: 2017Q1

REPORT INFORMATION
  Report Type: Spontaneous
  Country: US (occurrence: US)
  Receive Date: 20170112
  Receipt Date: 20170112
  Transmission Date: 20170428
  Serious: Yes (Hospitalization)
  Sender: FDA-Public Use
  Company Number: None

PATIENT
  Age: 2 Year
  Sex: Male
  Weight: 15.6 kg

DRUGS (7)
  1. DIPHENHYDRAMINE. [Concomitant]
     Active Substance: DIPHENHYDRAMINE
  2. NEOSPORIN [Suspect]
     Active Substance: BACITRACIN ZINC\NEOMYCIN SULFATE\POLYMYXIN B SULFATE
     Indication: WOUND
     Dates: start: 20170105, end: 20170110
  3. CEFTRIAXONE. [Concomitant]
     Active Substance: CEFTRIAXONE
  4. AMOXICILLIN. [Concomitant]
     Active Substance: AMOXICILLIN
  5. ACETAMINOPHEN. [Concomitant]
     Active Substance: ACETAMINOPHEN
  6. VASELINE PURE [Concomitant]
     Active Substance: PETROLATUM
  7. CLINDAMYCIN. [Concomitant]
     Active Substance: CLINDAMYCIN

REACTIONS (2)
  - Dermatitis contact [None]
  - Superinfection bacterial [None]

NARRATIVE: CASE EVENT DATE: 20170105
